FAERS Safety Report 5373745-7 (Version None)
Quarter: 2007Q2

REPORT INFORMATION
  Report Type: 
  Country: None (occurrence: None)
  Receive Date: 20070628
  Receipt Date: 20070619
  Transmission Date: 20071010
  Serious: Yes (Hospitalization)
  Sender: FDA-Public Use
  Company Number: US-ELI_LILLY_AND_COMPANY-US200703006504

PATIENT
  Age: 64 Year
  Sex: Male

DRUGS (5)
  1. HUMALOG [Suspect]
     Indication: DIABETES MELLITUS
     Dosage: 20 U, EACH MORNING
     Dates: start: 20030101
  2. HUMALOG [Suspect]
     Dosage: 15 U, OTHER
     Dates: start: 20030101
  3. HUMALOG [Suspect]
     Dosage: 40 U, AS NEEDED
     Dates: start: 20070101
  4. HUMULIN N [Suspect]
     Indication: DIABETES MELLITUS
     Dosage: 10 U, OTHER
     Dates: start: 20030101
  5. HUMULIN N [Suspect]
     Dosage: 40 U, EACH EVENING
     Dates: start: 20030101

REACTIONS (4)
  - BLOOD GLUCOSE INCREASED [None]
  - CORONARY ARTERY OCCLUSION [None]
  - DRUG INEFFECTIVE [None]
  - PAIN [None]
